FAERS Safety Report 9116509 (Version 1)
Quarter: 2013Q1

REPORT INFORMATION
  Report Type: Spontaneous
  Country: US (occurrence: US)
  Receive Date: 20130225
  Receipt Date: 20130225
  Transmission Date: 20140127
  Serious: No
  Sender: FDA-Public Use
  Company Number: US-NOVEN-13US006042

PATIENT
  Age: 52 Year
  Sex: Female

DRUGS (1)
  1. MINIVELLE [Suspect]
     Indication: MENOPAUSE
     Dosage: .05 MG, QD
     Route: 062
     Dates: start: 20130121, end: 20130121

REACTIONS (3)
  - Dizziness [Recovered/Resolved]
  - Nausea [Recovered/Resolved]
  - Depressed mood [Recovered/Resolved]
